FAERS Safety Report 17394701 (Version 2)
Quarter: 2020Q1

REPORT INFORMATION
  Report Type: Report from Study
  Country: CH (occurrence: CH)
  Receive Date: 20200210
  Receipt Date: 20200213
  Transmission Date: 20200409
  Serious: Yes (Death)
  Sender: FDA-Public Use
  Company Number: CH-B.I. PHARMACEUTICALS,INC./RIDGEFIELD-2020-BI-007397

PATIENT

DRUGS (2)
  1. JARDIANCE [Suspect]
     Active Substance: EMPAGLIFLOZIN
     Indication: HYPONATRAEMIA
     Route: 065
  2. JARDIANCE [Suspect]
     Active Substance: EMPAGLIFLOZIN
     Indication: INAPPROPRIATE ANTIDIURETIC HORMONE SECRETION

REACTIONS (2)
  - Product use in unapproved indication [Unknown]
  - Death [Fatal]
